FAERS Safety Report 20512563 (Version 1)
Quarter: 2022Q1

REPORT INFORMATION
  Report Type: Spontaneous
  Country: US (occurrence: US)
  Receive Date: 20220224
  Receipt Date: 20220224
  Transmission Date: 20220423
  Serious: No
  Sender: FDA-Public Use
  Company Number: US-MYLANLABS-2022M1010009

PATIENT
  Age: 53 Year
  Sex: Female
  Weight: 61.23 kg

DRUGS (1)
  1. ESTRADIOL TRANSDERMAL SYSTEM [Suspect]
     Active Substance: ESTRADIOL
     Indication: Hormone replacement therapy
     Dosage: 0.075 MILLIGRAM, QD
     Route: 062
     Dates: start: 20211206

REACTIONS (8)
  - Drug ineffective [Unknown]
  - Product adhesion issue [Unknown]
  - Asthenia [Unknown]
  - Anxiety [Unknown]
  - Emotional disorder [Unknown]
  - Hot flush [Unknown]
  - Night sweats [Unknown]
  - Incorrect dose administered [Unknown]

NARRATIVE: CASE EVENT DATE: 20211206
